FAERS Safety Report 14309746 (Version 57)
Quarter: 2020Q1

REPORT INFORMATION
  Report Type: Spontaneous
  Country: CA (occurrence: CA)
  Receive Date: 20171220
  Receipt Date: 20200330
  Transmission Date: 20200409
  Serious: Yes (Other)
  Sender: FDA-Public Use
  Company Number: CA-CELLTRION INC.-2017CA009441

PATIENT

DRUGS (43)
  1. INFLECTRA [Suspect]
     Active Substance: INFLIXIMAB-DYYB
     Dosage: 310 MG, (EVERY 4 WEEKS)
     Route: 042
     Dates: start: 20181221, end: 20181221
  2. INFLECTRA [Suspect]
     Active Substance: INFLIXIMAB-DYYB
     Dosage: 310 MG, (EVERY 4 WEEKS)
     Route: 042
     Dates: start: 20200214
  3. INFLECTRA [Suspect]
     Active Substance: INFLIXIMAB-DYYB
     Dosage: 310 MG, (EVERY 6 WEEKS)
     Route: 042
  4. PREDNISONE. [Concomitant]
     Active Substance: PREDNISONE
     Dosage: 25 MG, ONCE DAILY
     Route: 048
     Dates: start: 201705, end: 2017
  5. PREDNISONE. [Concomitant]
     Active Substance: PREDNISONE
     Dosage: 20 MG, UNK
     Route: 048
     Dates: start: 20180104
  6. ACETAMINOPHEN. [Concomitant]
     Active Substance: ACETAMINOPHEN
     Indication: PREMEDICATION
     Dosage: 650 MG, UNK
     Route: 048
  7. INFLECTRA [Suspect]
     Active Substance: INFLIXIMAB-DYYB
     Dosage: 310 MG, (EVERY 4 WEEKS)
     Route: 042
     Dates: start: 20180202, end: 20180202
  8. INFLECTRA [Suspect]
     Active Substance: INFLIXIMAB-DYYB
     Dosage: 310 MG, (EVERY 4 WEEKS)
     Route: 042
     Dates: start: 20180406, end: 20180406
  9. INFLECTRA [Suspect]
     Active Substance: INFLIXIMAB-DYYB
     Dosage: 310 MG, (EVERY 4 WEEKS)
     Route: 042
     Dates: start: 20190510, end: 20190510
  10. INFLECTRA [Suspect]
     Active Substance: INFLIXIMAB-DYYB
     Dosage: 310 MG, (EVERY 4 WEEKS)
     Route: 042
     Dates: start: 20190607, end: 20190607
  11. PREDNISONE. [Concomitant]
     Active Substance: PREDNISONE
     Dosage: 20 MG, UNK
     Route: 048
     Dates: start: 20180104
  12. INFLECTRA [Suspect]
     Active Substance: INFLIXIMAB-DYYB
     Dosage: 310 MG, (EVERY 4 WEEKS)
     Route: 042
     Dates: start: 20180601, end: 20180601
  13. INFLECTRA [Suspect]
     Active Substance: INFLIXIMAB-DYYB
     Dosage: 310 MG, (EVERY 4 WEEKS)
     Route: 042
     Dates: start: 20190117, end: 20190117
  14. PREDNISONE. [Concomitant]
     Active Substance: PREDNISONE
     Dosage: 50 MG, 1X/DAY (50 MG, FOR 5 DAYS)
     Route: 048
  15. INFLECTRA [Suspect]
     Active Substance: INFLIXIMAB-DYYB
     Dosage: 309 MG, WEEK 0, 2, 6 THEN EVERY 8 WEEKS
     Route: 042
     Dates: start: 20171208, end: 20171208
  16. INFLECTRA [Suspect]
     Active Substance: INFLIXIMAB-DYYB
     Dosage: 310 MG, (EVERY 4 WEEKS)
     Route: 042
     Dates: start: 20180921, end: 20180921
  17. INFLECTRA [Suspect]
     Active Substance: INFLIXIMAB-DYYB
     Dosage: 310 MG, (EVERY 4 WEEKS)
     Route: 042
     Dates: start: 20181018, end: 20181018
  18. INFLECTRA [Suspect]
     Active Substance: INFLIXIMAB-DYYB
     Dosage: 310 MG, (EVERY 4 WEEKS)
     Route: 042
     Dates: start: 20190315, end: 20190315
  19. INFLECTRA [Suspect]
     Active Substance: INFLIXIMAB-DYYB
     Dosage: 310 MG, (EVERY 4 WEEKS)
     Route: 042
     Dates: start: 20190624, end: 20190624
  20. INFLECTRA [Suspect]
     Active Substance: INFLIXIMAB-DYYB
     Dosage: 310 MG, (EVERY 4 WEEKS)
     Route: 042
     Dates: start: 20190919, end: 20190919
  21. MOMETASONE FUROATE. [Concomitant]
     Active Substance: MOMETASONE FUROATE
     Indication: HYPERSENSITIVITY
     Dosage: UNK UNK, DAILY
     Route: 045
  22. INFLECTRA [Suspect]
     Active Substance: INFLIXIMAB-DYYB
     Dosage: 310 MG, (EVERY 4 WEEKS)
     Route: 042
     Dates: start: 20180308, end: 20180308
  23. INFLECTRA [Suspect]
     Active Substance: INFLIXIMAB-DYYB
     Dosage: 310 MG, (EVERY 4 WEEKS)
     Route: 042
     Dates: start: 20180629, end: 20180629
  24. INFLECTRA [Suspect]
     Active Substance: INFLIXIMAB-DYYB
     Dosage: 310 MG, (EVERY 4 WEEKS)
     Route: 042
     Dates: start: 20191206
  25. INFLECTRA [Suspect]
     Active Substance: INFLIXIMAB-DYYB
     Dosage: 310 MG, (EVERY 4 WEEKS)
     Route: 042
     Dates: start: 20200110
  26. PREDNISONE. [Concomitant]
     Active Substance: PREDNISONE
     Dosage: 15 MG, UNK
     Route: 048
  27. BISOPROLOL [Concomitant]
     Active Substance: BISOPROLOL
     Dosage: 2.5 MG (1/2 TABLET)
     Route: 048
  28. HYDROCORTISONE. [Concomitant]
     Active Substance: HYDROCORTISONE
     Indication: PREMEDICATION
     Dosage: 100 MG, UNK
     Route: 042
  29. INFLECTRA [Suspect]
     Active Substance: INFLIXIMAB-DYYB
     Dosage: 310 MG, (EVERY 4 WEEKS)
     Route: 042
     Dates: start: 20180507, end: 20180507
  30. INFLECTRA [Suspect]
     Active Substance: INFLIXIMAB-DYYB
     Dosage: 310 MG, (EVERY 4 WEEKS)
     Route: 042
     Dates: start: 20180726, end: 20180726
  31. INFLECTRA [Suspect]
     Active Substance: INFLIXIMAB-DYYB
     Dosage: 310 MG, (EVERY 4 WEEKS)
     Route: 042
     Dates: start: 20180828, end: 20180828
  32. INFLECTRA [Suspect]
     Active Substance: INFLIXIMAB-DYYB
     Dosage: 310 MG, (EVERY 4 WEEKS)
     Route: 042
     Dates: start: 20181126, end: 20181126
  33. INFLECTRA [Suspect]
     Active Substance: INFLIXIMAB-DYYB
     Dosage: 310 MG, (EVERY 4 WEEKS)
     Route: 042
     Dates: start: 20190215, end: 20190215
  34. INFLECTRA [Suspect]
     Active Substance: INFLIXIMAB-DYYB
     Dosage: 310 MG, (EVERY 4 WEEKS)
     Route: 042
     Dates: start: 20190412, end: 20190412
  35. INFLECTRA [Suspect]
     Active Substance: INFLIXIMAB-DYYB
     Dosage: 310 MG, (EVERY 4 WEEKS)
     Route: 042
     Dates: start: 20190722, end: 20190722
  36. INFLECTRA [Suspect]
     Active Substance: INFLIXIMAB-DYYB
     Dosage: 309 MG, WEEK 0, 2, 6 THEN EVERY 8 WEEKS, THEN EVERY 8 WEEKS)
     Route: 042
     Dates: start: 20171013, end: 2017
  37. INFLECTRA [Suspect]
     Active Substance: INFLIXIMAB-DYYB
     Dosage: 310 MG, (EVERY 4 WEEKS)
     Route: 042
     Dates: start: 20181221, end: 20181221
  38. INFLECTRA [Suspect]
     Active Substance: INFLIXIMAB-DYYB
     Dosage: 310 MG, (EVERY 4 WEEKS)
     Route: 042
     Dates: start: 20190816, end: 20190816
  39. INFLECTRA [Suspect]
     Active Substance: INFLIXIMAB-DYYB
     Dosage: 310 MG, (EVERY 4 WEEKS)
     Route: 042
     Dates: start: 20191031
  40. INFLECTRA [Suspect]
     Active Substance: INFLIXIMAB-DYYB
     Indication: CROHN^S DISEASE
     Dosage: 309 MG, WEEK 0, 2, 6 THEN EVERY 8 WEEKS
     Route: 042
     Dates: start: 20170707, end: 20171208
  41. MEZAVANT [Concomitant]
     Active Substance: MESALAMINE
     Dosage: 2 DF, 2X/DAY(1.2G - 2 TABLETS)
     Route: 048
     Dates: start: 2016
  42. PREDNISONE. [Concomitant]
     Active Substance: PREDNISONE
     Dosage: 25 MG, ONCE DAILY FOR TWO WEEKS THEN TAPER 5 MG EVERY 2 WEEKS
     Route: 048
     Dates: start: 20170628, end: 201710
  43. DIPHENHYDRAMINE. [Concomitant]
     Active Substance: DIPHENHYDRAMINE
     Indication: PREMEDICATION
     Dosage: 50 MG, UNK
     Route: 042

REACTIONS (83)
  - Pelvic inflammatory disease [Unknown]
  - Pelvic pain [Unknown]
  - Dry throat [Recovered/Resolved]
  - Inflammation [Unknown]
  - Stress [Not Recovered/Not Resolved]
  - Back pain [Not Recovered/Not Resolved]
  - Blood urine present [Unknown]
  - Throat irritation [Unknown]
  - Cough [Not Recovered/Not Resolved]
  - Ear infection viral [Not Recovered/Not Resolved]
  - Aphthous ulcer [Unknown]
  - Erythema [Recovered/Resolved]
  - Myalgia [Unknown]
  - Influenza [Recovering/Resolving]
  - Headache [Recovered/Resolved]
  - Haemorrhoids [Unknown]
  - Viral infection [Not Recovered/Not Resolved]
  - Arthralgia [Not Recovered/Not Resolved]
  - Hypersensitivity [Not Recovered/Not Resolved]
  - Erythema nodosum [Not Recovered/Not Resolved]
  - Pain in extremity [Unknown]
  - Anxiety [Not Recovered/Not Resolved]
  - Abdominal pain upper [Unknown]
  - Off label use [Unknown]
  - Uveitis [Unknown]
  - Drug level below therapeutic [Unknown]
  - Blood pressure fluctuation [Unknown]
  - Animal scratch [Recovering/Resolving]
  - Fatigue [Unknown]
  - Urine odour abnormal [Unknown]
  - Nausea [Unknown]
  - Dizziness [Unknown]
  - Bronchitis [Unknown]
  - Rash [Unknown]
  - Bladder discomfort [Unknown]
  - Product dispensing error [Unknown]
  - Inappropriate schedule of product administration [Unknown]
  - Lower respiratory tract infection [Unknown]
  - Irritable bowel syndrome [Unknown]
  - Drug specific antibody present [Unknown]
  - Dysuria [Unknown]
  - Middle ear effusion [Unknown]
  - Pain [Unknown]
  - Blood 25-hydroxycholecalciferol decreased [Unknown]
  - Hot flush [Unknown]
  - Chest discomfort [Unknown]
  - Dyspnoea [Unknown]
  - Pollakiuria [Not Recovered/Not Resolved]
  - Micturition urgency [Recovering/Resolving]
  - Paraesthesia oral [Unknown]
  - Oral mucosal erythema [Unknown]
  - Hand-foot-and-mouth disease [Unknown]
  - Sensitive skin [Recovered/Resolved]
  - Cystitis [Recovered/Resolved]
  - Musculoskeletal stiffness [Not Recovered/Not Resolved]
  - Heart rate irregular [Unknown]
  - Transferrin saturation increased [Unknown]
  - Malaise [Recovered/Resolved]
  - Muscle strain [Unknown]
  - White blood cells urine [Unknown]
  - Feeling abnormal [Unknown]
  - Abdominal discomfort [Recovered/Resolved]
  - Vein collapse [Recovered/Resolved]
  - Burning sensation [Unknown]
  - Asthenia [Unknown]
  - Fungal infection [Unknown]
  - Condition aggravated [Not Recovered/Not Resolved]
  - Gastrointestinal motility disorder [Not Recovered/Not Resolved]
  - Abnormal faeces [Unknown]
  - Paraesthesia [Unknown]
  - Dry skin [Unknown]
  - Skin disorder [Unknown]
  - Ear discomfort [Recovered/Resolved]
  - Feeling cold [Unknown]
  - Mucous stools [Not Recovered/Not Resolved]
  - Urticaria [Recovered/Resolved]
  - Nasopharyngitis [Not Recovered/Not Resolved]
  - Oropharyngeal pain [Recovered/Resolved]
  - Rhinorrhoea [Not Recovered/Not Resolved]
  - Contusion [Recovered/Resolved]
  - Ear pain [Recovered/Resolved]
  - Oral herpes [Not Recovered/Not Resolved]
  - Urinary tract infection [Not Recovered/Not Resolved]

NARRATIVE: CASE EVENT DATE: 2017
